FAERS Safety Report 12092398 (Version 1)
Quarter: 2016Q1

REPORT INFORMATION
  Report Type: Spontaneous
  Country: US (occurrence: None)
  Receive Date: 20160217
  Receipt Date: 20160217
  Transmission Date: 20160526
  Serious: No
  Sender: FDA-Public Use
  Company Number: None

PATIENT
  Age: 59 Year
  Sex: Male

DRUGS (9)
  1. PREDNISONE. [Concomitant]
     Active Substance: PREDNISONE
  2. AMPICILLIN [Concomitant]
     Active Substance: AMPICILLIN
  3. EXJADE [Suspect]
     Active Substance: DEFERASIROX
     Indication: HAEMOCHROMATOSIS
     Dosage: STIRRING IN A W H20 OR JUICE
     Route: 048
     Dates: start: 20151013
  4. NYSTATIN. [Concomitant]
     Active Substance: NYSTATIN
  5. LEVOFLOXACIN. [Concomitant]
     Active Substance: LEVOFLOXACIN
  6. CEPHALEXIN. [Concomitant]
     Active Substance: CEPHALEXIN
  7. FLUCONAZOLE. [Concomitant]
     Active Substance: FLUCONAZOLE
  8. ONDANSETRON [Concomitant]
     Active Substance: ONDANSETRON
  9. DANAZOL. [Concomitant]
     Active Substance: DANAZOL

REACTIONS (2)
  - Incorrect dose administered [None]
  - Underdose [None]

NARRATIVE: CASE EVENT DATE: 201601
